FAERS Safety Report 6756093-X (Version None)
Quarter: 2010Q2

REPORT INFORMATION
  Report Type: 
  Country: None (occurrence: None)
  Receive Date: 20100604
  Receipt Date: 20100524
  Transmission Date: 20101027
  Serious: Yes (Hospitalization, Other)
  Sender: FDA-Public Use
  Company Number: US-PFIZER INC-2010051534

PATIENT
  Sex: Female
  Weight: 127.89 kg

DRUGS (5)
  1. CHANTIX [Suspect]
     Indication: SMOKING CESSATION THERAPY
     Dosage: 0.5 MG, 1/2 TABLET DAILY
     Route: 048
     Dates: start: 20091201, end: 20091201
  2. CHANTIX [Suspect]
     Dosage: 0.5 MG, 1/2 TABLET 2X/DAY
     Route: 048
     Dates: start: 20091201, end: 20091201
  3. CHANTIX [Suspect]
     Dosage: UNK
     Route: 048
     Dates: start: 20091201, end: 20091230
  4. METFORMIN [Concomitant]
     Indication: DIABETES MELLITUS
     Dosage: 500 MG, 2X/DAY
     Route: 048
  5. LISINOPRIL [Concomitant]
     Indication: HYPERTENSION
     Dosage: 20 MG, 1X/DAY
     Route: 048

REACTIONS (6)
  - HEART RATE INCREASED [None]
  - MALAISE [None]
  - MUSCULAR WEAKNESS [None]
  - PAIN IN EXTREMITY [None]
  - PALPITATIONS [None]
  - VOMITING [None]
